FAERS Safety Report 20548673 (Version 1)
Quarter: 2022Q1

REPORT INFORMATION
  Report Type: Spontaneous
  Country: US (occurrence: US)
  Receive Date: 20220303
  Receipt Date: 20220303
  Transmission Date: 20220423
  Serious: No
  Sender: FDA-Public Use
  Company Number: US-ALLERGAN-2122556US

PATIENT
  Sex: Male

DRUGS (3)
  1. RESTASIS [Suspect]
     Active Substance: CYCLOSPORINE
     Indication: Blepharospasm
  2. RESTASIS [Suspect]
     Active Substance: CYCLOSPORINE
     Indication: Photophobia
  3. RESTASIS [Suspect]
     Active Substance: CYCLOSPORINE
     Indication: Dry eye

REACTIONS (2)
  - Off label use [Unknown]
  - Drug ineffective [Unknown]
